FAERS Safety Report 15345375 (Version 2)
Quarter: 2018Q3

REPORT INFORMATION
  Report Type: Spontaneous
  Country: PT (occurrence: PT)
  Receive Date: 20180903
  Receipt Date: 20180913
  Transmission Date: 20181010
  Serious: Yes (Disabling)
  Sender: FDA-Public Use
  Company Number: PT-009507513-1808PRT011155

PATIENT
  Age: 1 Year
  Sex: Female
  Weight: 11.5 kg

DRUGS (1)
  1. SINGULAIR [Suspect]
     Active Substance: MONTELUKAST SODIUM
     Indication: BRONCHIOLITIS
     Dosage: 1 DF, QD
     Route: 048
     Dates: start: 20180630, end: 20180806

REACTIONS (14)
  - Anxiety [Recovered/Resolved]
  - Tremor [Recovered/Resolved]
  - Poor quality sleep [Recovered/Resolved]
  - Mood altered [Recovered/Resolved]
  - Nightmare [Recovered/Resolved]
  - Irritability [Recovered/Resolved]
  - Abnormal dreams [Recovered/Resolved]
  - Nervousness [Recovered/Resolved]
  - Balance disorder [Recovered/Resolved]
  - Agitation [Recovered/Resolved]
  - Faeces soft [Recovered/Resolved]
  - Vomiting [Recovered/Resolved]
  - Hallucination [Recovered/Resolved]
  - Abnormal behaviour [Recovered/Resolved]

NARRATIVE: CASE EVENT DATE: 20180716
